FAERS Safety Report 15903416 (Version 2)
Quarter: 2019Q1

REPORT INFORMATION
  Report Type: Spontaneous
  Country: US (occurrence: US)
  Receive Date: 20190202
  Receipt Date: 20190211
  Transmission Date: 20190417
  Serious: Yes (Other)
  Sender: FDA-Public Use
  Company Number: PHHY2019US019384

PATIENT

DRUGS (2)
  1. BETAMETHASONE. [Suspect]
     Active Substance: BETAMETHASONE
     Indication: FOETAL EXPOSURE DURING PREGNANCY
     Route: 064
  2. ANCEF [Suspect]
     Active Substance: CEFAZOLIN SODIUM
     Indication: FOETAL EXPOSURE DURING PREGNANCY
     Route: 064

REACTIONS (7)
  - Premature baby [Unknown]
  - Tachycardia [Unknown]
  - Hypotonia [Unknown]
  - Foetal exposure during pregnancy [Unknown]
  - Skull fracture [Unknown]
  - Foetal-maternal haemorrhage [Unknown]
  - Respiratory rate decreased [Unknown]
